FAERS Safety Report 9292113 (Version 2)
Quarter: 2013Q2

REPORT INFORMATION
  Report Type: Report from Study
  Country: SE (occurrence: SE)
  Receive Date: 20130516
  Receipt Date: 20130606
  Transmission Date: 20140414
  Serious: Yes (Hospitalization)
  Sender: FDA-Public Use
  Company Number: SE-ROCHE-1221057

PATIENT
  Age: 60 Year
  Sex: Male

DRUGS (3)
  1. CAPECITABINE [Suspect]
     Indication: GASTRIC CANCER
     Dosage: CUMULATIVE DOSE: 114800 MG, LAST DOSE PRIOR TO SAE: 02/JAN/2013, FOR 3 WEEKS
     Route: 048
     Dates: start: 20121031
  2. EPIRUBICIN HYDROCHLORIDE [Suspect]
     Indication: GASTRIC CANCER
     Dosage: CUMULATIVE DOSE: 327 MG, LAST DOSE PRIOR TO SAE: 12/DEC/2012
     Route: 042
     Dates: start: 20121031
  3. OXALIPLATIN [Suspect]
     Indication: GASTRIC CANCER
     Dosage: CUMULATIVE DOSE: 849 MG, LAST DOSE PRIOR TO SAE: 12/DEC/2012
     Route: 042
     Dates: start: 20121031

REACTIONS (7)
  - Dyspnoea [Recovered/Resolved]
  - General physical health deterioration [Recovering/Resolving]
  - Weight decreased [Recovering/Resolving]
  - Pleural effusion [Recovered/Resolved]
  - Pyrexia [Recovered/Resolved]
  - Abscess [Recovering/Resolving]
  - Abdominal discomfort [Recovering/Resolving]
